FAERS Safety Report 9034929 (Version 1)
Quarter: 2013Q1

REPORT INFORMATION
  Report Type: Report from Study
  Country: US (occurrence: US)
  Receive Date: 20130129
  Receipt Date: 20130129
  Transmission Date: 20140127
  Serious: No
  Sender: FDA-Public Use
  Company Number: US-ABBOTT-12P-163-0893049-00

PATIENT
  Age: 19 Year
  Sex: Female
  Weight: 83.08 kg

DRUGS (11)
  1. HUMIRA 40 MG/0.8 ML PEN [Suspect]
     Indication: CROHN^S DISEASE
     Dosage: FIRST LOADING DOSE, ONCE
     Route: 058
     Dates: start: 20111215, end: 20111215
  2. HUMIRA 40 MG/0.8 ML PEN [Suspect]
     Dosage: SECOND LOADING DOSE, ONCE
     Route: 058
     Dates: start: 20111229, end: 20111229
  3. HUMIRA 40 MG/0.8 ML PEN [Suspect]
  4. PREVACID [Concomitant]
     Indication: CROHN^S DISEASE
  5. PREDNISONE [Concomitant]
     Indication: CROHN^S DISEASE
  6. PRENATAL VITAMINS [Concomitant]
     Indication: VITAMIN SUPPLEMENTATION
  7. HYDROCODONE [Concomitant]
     Indication: PAIN
     Dosage: 7.5/325 MG, EVERY FOUR HOURS
  8. FLEXERIL [Concomitant]
     Indication: MUSCLE SPASMS
  9. OTC ANTI-DIARRHEAL MEDICATION [Concomitant]
     Indication: PRODUCT USED FOR UNKNOWN INDICATION
     Dosage: FOUR PILLS A DAY
  10. OTC MENSTRUAL RELIEF MEDICATION [Concomitant]
     Indication: MUSCLE SPASMS
     Dosage: ONCE DAILY IN THE MORNING
  11. 6-MP [Concomitant]
     Indication: CROHN^S DISEASE

REACTIONS (2)
  - Haemorrhoids [Recovering/Resolving]
  - Crohn^s disease [Unknown]
